FAERS Safety Report 16734913 (Version 1)
Quarter: 2019Q3

REPORT INFORMATION
  Report Type: Spontaneous
  Country: US (occurrence: US)
  Receive Date: 20190708
  Receipt Date: 20190708
  Transmission Date: 20191005
  Serious: No
  Sender: FDA-Public Use
  Company Number: None

PATIENT
  Age: 62 Year
  Sex: Female

DRUGS (1)
  1. AFINITOR [Suspect]
     Active Substance: EVEROLIMUS
     Indication: LEIOMYOMA
     Dosage: ?
     Route: 048
     Dates: start: 20180430

REACTIONS (2)
  - Taste disorder [None]
  - Weight decreased [None]

NARRATIVE: CASE EVENT DATE: 201810
